FAERS Safety Report 13013401 (Version 1)
Quarter: 2016Q4

REPORT INFORMATION
  Report Type: Spontaneous
  Country: US (occurrence: US)
  Receive Date: 20161209
  Receipt Date: 20161209
  Transmission Date: 20170207
  Serious: No
  Sender: FDA-Public Use
  Company Number: US-GLAXOSMITHKLINE-US2016182142

PATIENT
  Age: 78 Year
  Sex: Female

DRUGS (1)
  1. VOLTAREN [Suspect]
     Active Substance: DICLOFENAC SODIUM
     Indication: ARTHRALGIA
     Dosage: UNK
     Dates: start: 2011

REACTIONS (7)
  - Head injury [Unknown]
  - Gait disturbance [Unknown]
  - Product use issue [Unknown]
  - Neck pain [Not Recovered/Not Resolved]
  - Fall [Unknown]
  - Arthralgia [Recovering/Resolving]
  - Drug administered at inappropriate site [Unknown]

NARRATIVE: CASE EVENT DATE: 2016
